FAERS Safety Report 18673827 (Version 1)
Quarter: 2020Q4

REPORT INFORMATION
  Report Type: Spontaneous
  Country: GB (occurrence: GB)
  Receive Date: 20201229
  Receipt Date: 20201229
  Transmission Date: 20210114
  Serious: Yes (Hospitalization, Other)
  Sender: FDA-Public Use
  Company Number: GB-AMCO LTD-GSH201508-013589

PATIENT

DRUGS (4)
  1. PREDNISOLONE. [Suspect]
     Active Substance: PREDNISOLONE
     Indication: IMMUNOSUPPRESSANT DRUG THERAPY
     Dosage: 10-60MG
     Route: 048
     Dates: start: 2007, end: 2014
  2. WARFARIN [Concomitant]
     Active Substance: WARFARIN
     Indication: ATRIAL FIBRILLATION
     Dates: start: 201404, end: 201409
  3. AZATHIOPRINE. [Concomitant]
     Active Substance: AZATHIOPRINE
  4. PREDNISOLONE. [Suspect]
     Active Substance: PREDNISOLONE
     Dosage: 5 MG, QD
     Route: 048
     Dates: start: 2014

REACTIONS (10)
  - Glomerulosclerosis [Unknown]
  - Obesity [Unknown]
  - Skin necrosis [Recovering/Resolving]
  - Hyperphosphataemia [Recovering/Resolving]
  - Pain [Recovering/Resolving]
  - Type 1 diabetes mellitus [Unknown]
  - Skin lesion [Recovering/Resolving]
  - Skin ulcer [Recovering/Resolving]
  - Skin plaque [Recovering/Resolving]
  - Calciphylaxis [Recovering/Resolving]

NARRATIVE: CASE EVENT DATE: 2014
